FAERS Safety Report 8179280-5 (Version None)
Quarter: 2012Q1

REPORT INFORMATION
  Report Type: 
  Country: None (occurrence: None)
  Receive Date: 20120229
  Receipt Date: 20120229
  Transmission Date: 20120608
  Serious: No
  Sender: FDA-Public Use
  Company Number: None

PATIENT
  Sex: Male
  Weight: 61.2356 kg

DRUGS (1)
  1. MORPHINE SULFATE [Suspect]
     Dosage: 1 EVERY 12 HRS AS NEEDED
     Dates: start: 20120213

REACTIONS (2)
  - PRODUCT SUBSTITUTION ISSUE [None]
  - WRONG TECHNIQUE IN DRUG USAGE PROCESS [None]
